FAERS Safety Report 10733735 (Version 1)
Quarter: 2015Q1

REPORT INFORMATION
  Report Type: Spontaneous
  Country: CA (occurrence: CA)
  Receive Date: 20150123
  Receipt Date: 20150123
  Transmission Date: 20150721
  Serious: Yes (Death, Other)
  Sender: FDA-Public Use
  Company Number: PHHY2015CA008705

PATIENT

DRUGS (7)
  1. IMATINIB [Suspect]
     Active Substance: IMATINIB
     Dosage: 300-400 MG, QD
     Route: 065
  2. CYTARABINE. [Suspect]
     Active Substance: CYTARABINE
     Indication: ACUTE MEGAKARYOCYTIC LEUKAEMIA
     Dosage: UNK
     Route: 065
     Dates: start: 200904
  3. IMATINIB [Suspect]
     Active Substance: IMATINIB
     Indication: ACUTE MEGAKARYOCYTIC LEUKAEMIA
     Dosage: 300 MG, BID
     Route: 065
  4. ANTITHYMOCYTE IMMUNOGLOBULIN [Suspect]
     Active Substance: THYMOCYTE IMMUNE GLOBULIN NOS
     Indication: ACUTE MEGAKARYOCYTIC LEUKAEMIA
     Route: 065
  5. NILOTINIB [Suspect]
     Active Substance: NILOTINIB
     Indication: ACUTE MEGAKARYOCYTIC LEUKAEMIA
     Route: 065
  6. IDARUBICIN [Suspect]
     Active Substance: IDARUBICIN
     Indication: ACUTE MEGAKARYOCYTIC LEUKAEMIA
     Dosage: UNK
     Route: 065
     Dates: start: 200904
  7. ETOPOSIDE. [Suspect]
     Active Substance: ETOPOSIDE
     Indication: ACUTE MEGAKARYOCYTIC LEUKAEMIA
     Route: 065

REACTIONS (5)
  - Acute megakaryocytic leukaemia [Unknown]
  - Leukaemia recurrent [Unknown]
  - Fungal infection [Unknown]
  - Death [Fatal]
  - Drug ineffective [Unknown]
